FAERS Safety Report 7799625-5 (Version None)
Quarter: 2011Q4

REPORT INFORMATION
  Report Type: 
  Country: None (occurrence: None)
  Receive Date: 20111006
  Receipt Date: 20110929
  Transmission Date: 20120403
  Serious: Yes (Life-Threatening, Hospitalization, Disabling)
  Sender: FDA-Public Use
  Company Number: DE-B.I. PHARMACEUTICALS,INC./RIDGEFIELD-2011-DE-05383DE

PATIENT
  Sex: Female

DRUGS (6)
  1. CA VIT D3 [Concomitant]
     Dosage: 0.8 MG
     Route: 048
  2. METOPROLOL TARTRATE [Concomitant]
     Route: 048
  3. DIGOXIN [Concomitant]
     Route: 048
  4. EZETIMIBE [Concomitant]
     Dosage: 10 MG
     Route: 048
  5. PRADAXA [Suspect]
     Indication: TRANSIENT ISCHAEMIC ATTACK
     Dosage: 220 MG
     Route: 048
     Dates: start: 20110708, end: 20110902
  6. SIMVASTATIN [Concomitant]
     Dosage: 10 MG
     Route: 048

REACTIONS (3)
  - SHOCK [None]
  - CEREBROVASCULAR ACCIDENT [None]
  - TACHYARRHYTHMIA [None]
